FAERS Safety Report 7282759-1 (Version None)
Quarter: 2011Q1

REPORT INFORMATION
  Report Type: 
  Country: None (occurrence: None)
  Receive Date: 20110209
  Receipt Date: 20110128
  Transmission Date: 20110831
  Serious: Yes (Hospitalization)
  Sender: FDA-Public Use
  Company Number: JP-JNJFOC-20100508282

PATIENT
  Age: 67 Year
  Sex: Male
  Weight: 73 kg

DRUGS (16)
  1. REMICADE [Suspect]
     Indication: PSORIASIS
     Route: 042
  2. REMICADE [Suspect]
     Route: 042
  3. REMICADE [Suspect]
     Route: 042
  4. MEROPENEM TRIHYDRATE [Suspect]
     Indication: PRODUCT USED FOR UNKNOWN INDICATION
     Route: 042
  5. ASPIRIN [Concomitant]
     Indication: MYOCARDIAL INFARCTION
     Route: 048
  6. OXAROL [Concomitant]
     Indication: PSORIASIS
     Route: 047
  7. AMARYL [Concomitant]
     Indication: DIABETES MELLITUS
     Route: 048
  8. MEVALOTIN [Concomitant]
     Indication: HYPERLIPIDAEMIA
     Route: 048
  9. REMICADE [Suspect]
     Route: 042
  10. DERMOVATE [Concomitant]
     Indication: PSORIASIS
     Route: 047
  11. ARTIST [Concomitant]
     Indication: HYPERTENSION
     Route: 048
  12. PANAPIDIN [Concomitant]
     Indication: MYOCARDIAL INFARCTION
     Route: 048
  13. ACTOS [Concomitant]
     Indication: DIABETES MELLITUS
     Route: 048
  14. ENALAPRIL MALEATE [Concomitant]
     Indication: HYPERTENSION
     Route: 048
  15. LUPRAC [Concomitant]
     Indication: OEDEMA DUE TO RENAL DISEASE
     Route: 048
  16. AMLODIPINE [Concomitant]
     Indication: HYPERTENSION
     Route: 048

REACTIONS (2)
  - PNEUMONIA LEGIONELLA [None]
  - HEPATIC FUNCTION ABNORMAL [None]
